FAERS Safety Report 12252328 (Version 1)
Quarter: 2016Q2

REPORT INFORMATION
  Report Type: Other
  Country: DE (occurrence: DE)
  Receive Date: 20160411
  Receipt Date: 20160411
  Transmission Date: 20160815
  Serious: Yes (Congenital Anomaly, Other)
  Sender: FDA-Public Use
  Company Number: DE-LUPIN PHARMACEUTICALS INC.-E2B_00005195

PATIENT
  Age: 0 Day
  Sex: Female
  Weight: 3.02 kg

DRUGS (6)
  1. FLUANXOL [Suspect]
     Active Substance: FLUPENTIXOL
     Indication: ACUTE PSYCHOSIS
     Route: 064
     Dates: start: 20150220, end: 20150720
  2. ATOSIL [Suspect]
     Active Substance: PROMETHAZINE HYDROCHLORIDE
     Indication: ACUTE PSYCHOSIS
     Dosage: 50 MG/DAY
     Route: 064
     Dates: start: 20150116
  3. ATOSIL [Suspect]
     Active Substance: PROMETHAZINE HYDROCHLORIDE
     Dosage: 30 MG/DAY
     Route: 064
     Dates: end: 20151004
  4. CLOZAPIN [Suspect]
     Active Substance: CLOZAPINE
     Indication: ACUTE PSYCHOSIS
     Route: 064
     Dates: start: 20150721, end: 20151004
  5. SERTRALINE [Suspect]
     Active Substance: SERTRALINE HYDROCHLORIDE
     Indication: ACUTE PSYCHOSIS
     Route: 064
     Dates: start: 20150220, end: 20151004
  6. FEMIBION [Concomitant]
     Active Substance: VITAMINS
     Indication: PROPHYLAXIS OF NEURAL TUBE DEFECT
     Route: 064
     Dates: start: 20150413, end: 20151004

REACTIONS (3)
  - Talipes [Unknown]
  - Respiratory disorder neonatal [Recovered/Resolved]
  - Foetal exposure during pregnancy [Unknown]

NARRATIVE: CASE EVENT DATE: 20151004
